FAERS Safety Report 17076963 (Version 2)
Quarter: 2019Q4

REPORT INFORMATION
  Report Type: Report from Study
  Country: US (occurrence: US)
  Receive Date: 20191126
  Receipt Date: 20191130
  Transmission Date: 20200122
  Serious: No
  Sender: FDA-Public Use
  Company Number: US-IPSEN BIOPHARMACEUTICALS, INC.-2019-22578

PATIENT
  Age: 75 Year

DRUGS (1)
  1. DYSPORT [Suspect]
     Active Substance: ABOBOTULINUMTOXINA
     Indication: TORTICOLLIS
     Dosage: UNITS: UNSPECIFIED. ANTEROCOLLIS (200), RETROCOLLIS (100), TORTICOLLIS (100) AND LATEROCOLLIS (100)
     Route: 065

REACTIONS (1)
  - Muscle spasticity [Unknown]
